FAERS Safety Report 26131846 (Version 1)
Quarter: 2025Q4

REPORT INFORMATION
  Report Type: Spontaneous
  Country: EU (occurrence: EU)
  Receive Date: 20251208
  Receipt Date: 20251208
  Transmission Date: 20260118
  Serious: Yes (Other)
  Sender: MYLAN
  Company Number: EU-ASTRAZENECA-202511EEA019866FR

PATIENT
  Sex: Male

DRUGS (4)
  1. TICAGRELOR [Suspect]
     Active Substance: TICAGRELOR
     Indication: Antiplatelet therapy
     Dosage: FILM-COATED TABLET
  2. TICAGRELOR [Suspect]
     Active Substance: TICAGRELOR
     Dosage: FILM-COATED TABLET
     Route: 065
  3. TICAGRELOR [Suspect]
     Active Substance: TICAGRELOR
     Dosage: FILM-COATED TABLET
     Route: 065
  4. TICAGRELOR [Suspect]
     Active Substance: TICAGRELOR
     Dosage: FILM-COATED TABLET

REACTIONS (1)
  - Cutaneous lupus erythematosus [Unknown]
